FAERS Safety Report 18105651 (Version 2)
Quarter: 2020Q3

REPORT INFORMATION
  Report Type: Spontaneous
  Country: KR (occurrence: KR)
  Receive Date: 20200803
  Receipt Date: 20200804
  Transmission Date: 20201103
  Serious: Yes (Hospitalization)
  Sender: FDA-Public Use
  Company Number: KR-ABBVIE-20P-090-3509034-00

PATIENT
  Age: 69 Year
  Sex: Male

DRUGS (17)
  1. ACETYLCYSTEINE. [Concomitant]
     Active Substance: ACETYLCYSTEINE
     Indication: NASOPHARYNGITIS
  2. PREDNISOLONE. [Concomitant]
     Active Substance: PREDNISOLONE
     Indication: NASOPHARYNGITIS
  3. CETIRIZINE [Concomitant]
     Active Substance: CETIRIZINE HYDROCHLORIDE
     Indication: NASOPHARYNGITIS
  4. ERDOSTEINE [Concomitant]
     Active Substance: ERDOSTEINE
     Indication: NASOPHARYNGITIS
  5. AMPICILLIN [Concomitant]
     Active Substance: AMPICILLIN
     Indication: NASOPHARYNGITIS
  6. LEVODROPROPIZINE [Concomitant]
     Active Substance: LEVODROPROPIZINE
     Indication: NASOPHARYNGITIS
  7. ROXITHROMYCIN [Suspect]
     Active Substance: ROXITHROMYCIN
     Indication: NASOPHARYNGITIS
     Route: 065
  8. IBUPROFEN. [Concomitant]
     Active Substance: IBUPROFEN
     Indication: NASOPHARYNGITIS
  9. CHLORPHENIRAMINE [CHLORPHENAMINE] [Concomitant]
     Active Substance: CHLORPHENIRAMINE
     Indication: NASOPHARYNGITIS
  10. CLARITHROMYCIN. [Suspect]
     Active Substance: CLARITHROMYCIN
     Indication: NASOPHARYNGITIS
     Route: 065
  11. CHLORPHENAMINE MALEATE;DIHYDROCODEINE BITARTRATE;GUAIFENESIN;METHYLEPH [Concomitant]
     Indication: NASOPHARYNGITIS
  12. DEXIBUPROFEN [Concomitant]
     Active Substance: DEXIBUPROFEN
     Indication: NASOPHARYNGITIS
  13. BENZONATATE. [Concomitant]
     Active Substance: BENZONATATE
     Indication: NASOPHARYNGITIS
  14. ACETAMINOPHEN. [Concomitant]
     Active Substance: ACETAMINOPHEN
     Indication: NASOPHARYNGITIS
  15. FAMOTIDINE. [Concomitant]
     Active Substance: FAMOTIDINE
     Indication: NASOPHARYNGITIS
  16. LOXOPROFEN [Concomitant]
     Active Substance: LOXOPROFEN
     Indication: NASOPHARYNGITIS
  17. CEFUROXIME. [Concomitant]
     Active Substance: CEFUROXIME
     Indication: NASOPHARYNGITIS

REACTIONS (3)
  - Leukocytosis [Recovered/Resolved]
  - C-reactive protein abnormal [Recovered/Resolved]
  - Stevens-Johnson syndrome [Recovered/Resolved]
